FAERS Safety Report 21811207 (Version 2)
Quarter: 2023Q1

REPORT INFORMATION
  Report Type: Spontaneous
  Country: US (occurrence: None)
  Receive Date: 20230103
  Receipt Date: 20230317
  Transmission Date: 20230417
  Serious: No
  Sender: FDA-Public Use
  Company Number: 2022A415125

PATIENT
  Age: 73 Year
  Sex: Male

DRUGS (2)
  1. SYMBICORT [Suspect]
     Active Substance: BUDESONIDE\FORMOTEROL FUMARATE DIHYDRATE
     Indication: Asthma
     Dosage: 80/4.5 MCG INHALER, ONE OR TWO PUFFS AS NEEDED80.0UG AS REQUIRED
     Route: 055
     Dates: start: 2018, end: 2021
  2. SYMBICORT [Suspect]
     Active Substance: BUDESONIDE\FORMOTEROL FUMARATE DIHYDRATE
     Indication: Asthma
     Dosage: 160/4.5 MCG, 120 INHALATION INHALER, ONE OR TWO PUFFS AS NEEDED160.0UG AS REQUIRED
     Route: 055
     Dates: start: 2021

REACTIONS (5)
  - Asthma [Unknown]
  - Cough [Unknown]
  - Therapy change [Unknown]
  - Product dose omission issue [Not Recovered/Not Resolved]
  - Product use issue [Unknown]

NARRATIVE: CASE EVENT DATE: 20180101
